FAERS Safety Report 4483368-X (Version None)
Quarter: 2004Q4

REPORT INFORMATION
  Report Type: 
  Country: None (occurrence: None)
  Receive Date: 20041020
  Receipt Date: 20040930
  Transmission Date: 20050328
  Serious: Yes (Hospitalization, Other)
  Sender: FDA-Public Use
  Company Number: CA_041007308

PATIENT
  Age: 47 Year
  Sex: Female

DRUGS (5)
  1. DOBUTAMINE HCL [Suspect]
     Indication: HYPERTROPHIC CARDIOMYOPATHY
     Dosage: 5 UG/KG/MIN OTHER
     Route: 050
  2. DIGOXIN [Concomitant]
  3. FOLATE SODIUM [Concomitant]
  4. LASIX [Concomitant]
  5. HEPARIN [Concomitant]

REACTIONS (16)
  - ASCITES [None]
  - BLOOD PRESSURE SYSTOLIC DECREASED [None]
  - CARDIAC FAILURE [None]
  - CARDIAC MURMUR [None]
  - CARDIOMEGALY [None]
  - COLLAPSE OF LUNG [None]
  - DILATATION ATRIAL [None]
  - DILATATION VENTRICULAR [None]
  - EJECTION FRACTION DECREASED [None]
  - EOSINOPHILIC MYOCARDITIS [None]
  - HEART TRANSPLANT [None]
  - MITRAL VALVE INCOMPETENCE [None]
  - PLEURAL EFFUSION [None]
  - TRICUSPID VALVE INCOMPETENCE [None]
  - VENOUS PRESSURE JUGULAR INCREASED [None]
  - VENTRICULAR DYSFUNCTION [None]
